FAERS Safety Report 6702854-2 (Version None)
Quarter: 2010Q2

REPORT INFORMATION
  Report Type: 
  Country: None (occurrence: None)
  Receive Date: 20100429
  Receipt Date: 20100429
  Transmission Date: 20101027
  Serious: Yes (Other)
  Sender: FDA-Public Use
  Company Number: None

PATIENT
  Age: 57 Year
  Sex: Female
  Weight: 126.1 kg

DRUGS (5)
  1. GABAPENTIN [Suspect]
     Indication: FIBROMYALGIA
     Dosage: 800 MG TAB AM PO; 800 MG TAB 2 HS PO
     Route: 048
     Dates: start: 20061001, end: 20100428
  2. SASALATE [Concomitant]
  3. ZIAC [Concomitant]
  4. PAROXETINE HCL [Concomitant]
  5. BUPROPION HCL [Concomitant]

REACTIONS (4)
  - ASTHMA [None]
  - OEDEMA PERIPHERAL [None]
  - UNEVALUABLE EVENT [None]
  - WHEEZING [None]
